FAERS Safety Report 9342862 (Version 1)
Quarter: 2013Q2

REPORT INFORMATION
  Report Type: Spontaneous
  Country: US (occurrence: US)
  Receive Date: 20130611
  Receipt Date: 20130611
  Transmission Date: 20140414
  Serious: Yes (Death)
  Sender: FDA-Public Use
  Company Number: US-GLAXOSMITHKLINE-A1026457A

PATIENT
  Age: 64 Year
  Sex: Female

DRUGS (9)
  1. VOTRIENT [Suspect]
     Indication: SOFT TISSUE CANCER
     Dosage: 800MG PER DAY
     Route: 048
     Dates: start: 20130515, end: 20130601
  2. ZOFRAN [Concomitant]
  3. B12 [Concomitant]
  4. CALCIUM + D [Concomitant]
  5. NORCO [Concomitant]
  6. COUMADIN [Concomitant]
  7. ZOCOR [Concomitant]
  8. LISINOPRIL [Concomitant]
  9. VENTOLIN HFA [Concomitant]

REACTIONS (1)
  - Death [Fatal]
